FAERS Safety Report 6291630-3 (Version None)
Quarter: 2009Q3

REPORT INFORMATION
  Report Type: 
  Country: None (occurrence: None)
  Receive Date: 20090730
  Receipt Date: 20090723
  Transmission Date: 20100115
  Serious: Yes (Other)
  Sender: FDA-Public Use
  Company Number: BR-ASTRAZENECA-2009UW21163

PATIENT
  Age: 5 Year
  Sex: Male

DRUGS (2)
  1. SYMBICORT [Suspect]
     Indication: ASTHMA
     Dosage: 80/4.5 MCG
     Route: 055
     Dates: start: 20090501
  2. ALLERGY VACCINE [Concomitant]
     Route: 065

REACTIONS (4)
  - ACCIDENTAL OVERDOSE [None]
  - NASOPHARYNGITIS [None]
  - TACHYCARDIA [None]
  - TREMOR [None]
